FAERS Safety Report 4961529-0 (Version None)
Quarter: 2006Q1

REPORT INFORMATION
  Report Type: 
  Country: None (occurrence: None)
  Receive Date: 20060329
  Receipt Date: 20060316
  Transmission Date: 20060701
  Serious: Yes (Hospitalization)
  Sender: FDA-Public Use
  Company Number: 2006038474

PATIENT
  Age: 78 Year
  Sex: Female

DRUGS (8)
  1. CLINDAMYCIN HYDROCHLORIDE [Suspect]
     Indication: ILL-DEFINED DISORDER
     Dosage: ORAL
     Route: 048
     Dates: start: 20060105, end: 20060115
  2. OFLOXACIN [Suspect]
     Indication: ILL-DEFINED DISORDER
     Dosage: ORAL
     Route: 048
     Dates: start: 20060104, end: 20060115
  3. DIGOXIN [Concomitant]
  4. ENALAPRIL MALEATE [Concomitant]
  5. FRAXIPARIN (HEPARIN-FRACTION, CALCIUM SALT) [Concomitant]
  6. METRONIDAZOLE [Concomitant]
  7. ROCEPHIN [Concomitant]
  8. KARDEGIC (ACETYLSALICYLIC LYSINE) [Concomitant]

REACTIONS (6)
  - ATRIAL FIBRILLATION [None]
  - INFUSION RELATED REACTION [None]
  - THROMBOCYTHAEMIA [None]
  - TOXIC SKIN ERUPTION [None]
  - URTICARIA [None]
  - VENTRICULAR DYSFUNCTION [None]
